FAERS Safety Report 8078156-1 (Version None)
Quarter: 2012Q1

REPORT INFORMATION
  Report Type: 
  Country: None (occurrence: None)
  Receive Date: 20120127
  Receipt Date: 20110127
  Transmission Date: 20120608
  Serious: No
  Sender: FDA-Public Use
  Company Number: US-ABBOTT-10P-163-0690908-00

PATIENT
  Age: 32 Year
  Sex: Male

DRUGS (4)
  1. TRAZODONE HCL [Concomitant]
     Indication: PRODUCT USED FOR UNKNOWN INDICATION
     Dosage: AT BEDTIME
  2. PERPHENAZINE [Concomitant]
     Indication: PRODUCT USED FOR UNKNOWN INDICATION
  3. HUMIRA [Suspect]
     Indication: PSORIASIS
     Dates: start: 20091001
  4. NEXIUM [Concomitant]
     Indication: PRODUCT USED FOR UNKNOWN INDICATION

REACTIONS (2)
  - DEVICE MALFUNCTION [None]
  - PAIN [None]
